FAERS Safety Report 4895882-3 (Version None)
Quarter: 2005Q4

REPORT INFORMATION
  Report Type: 
  Country: None (occurrence: None)
  Receive Date: 20051220
  Receipt Date: 20050930
  Transmission Date: 20060501
  Serious: Yes (Other)
  Sender: FDA-Public Use
  Company Number: 419890

PATIENT
  Age: 53 Year
  Sex: Female
  Weight: 56.2 kg

DRUGS (1)
  1. BONIVA [Suspect]
     Indication: OSTEOPOROSIS
     Dosage: 150 MG 1 PER MONTH ORAL
     Route: 048
     Dates: start: 20050923

REACTIONS (3)
  - ARTHRALGIA [None]
  - DYSPEPSIA [None]
  - DYSPNOEA [None]
